FAERS Safety Report 15731462 (Version 1)
Quarter: 2018Q4

REPORT INFORMATION
  Report Type: Spontaneous
  Country: US (occurrence: US)
  Receive Date: 20181217
  Receipt Date: 20181217
  Transmission Date: 20190205
  Serious: Yes (Other)
  Sender: FDA-Public Use
  Company Number: US-TEVA-2018-US-988408

PATIENT
  Sex: Male

DRUGS (1)
  1. SUCRALFATE TABLETS [Suspect]
     Active Substance: SUCRALFATE
     Indication: GASTRIC ULCER
     Dates: start: 20181129, end: 20181130

REACTIONS (7)
  - Speech disorder [Not Recovered/Not Resolved]
  - Nocturnal dyspnoea [Recovered/Resolved]
  - Pharyngeal oedema [Not Recovered/Not Resolved]
  - Testicular swelling [Recovered/Resolved]
  - Penile swelling [Recovered/Resolved]
  - Pruritus generalised [Recovered/Resolved]
  - Dyspnoea [Recovered/Resolved]

NARRATIVE: CASE EVENT DATE: 20181129
